FAERS Safety Report 5578429-8 (Version None)
Quarter: 2007Q4

REPORT INFORMATION
  Report Type: 
  Country: None (occurrence: None)
  Receive Date: 20071231
  Receipt Date: 20071221
  Transmission Date: 20080405
  Serious: Yes (Life-Threatening, Hospitalization, Other)
  Sender: FDA-Public Use
  Company Number: DE-PFIZER INC-2007107101

PATIENT
  Age: 12 Year
  Sex: Female
  Weight: 37 kg

DRUGS (2)
  1. GENOTROPIN [Suspect]
     Indication: TURNER'S SYNDROME
     Dosage: FREQ:12 MG WEEKLY
     Route: 058
  2. L-THYROXIN [Concomitant]
     Dosage: DAILY DOSE:25MCG-FREQ:DAILY
     Route: 048
     Dates: start: 20070606

REACTIONS (1)
  - NON-HODGKIN'S LYMPHOMA [None]
